FAERS Safety Report 5774331-7 (Version None)
Quarter: 2008Q2

REPORT INFORMATION
  Report Type: 
  Country: None (occurrence: None)
  Receive Date: 20080616
  Receipt Date: 20080608
  Transmission Date: 20081010
  Serious: Yes (Other)
  Sender: FDA-Public Use
  Company Number: PHHO2008IT07339

PATIENT
  Sex: Male
  Weight: 83 kg

DRUGS (3)
  1. TASIGNA [Suspect]
     Indication: CHRONIC MYELOID LEUKAEMIA
     Dosage: 800 MG, QD
     Route: 048
     Dates: start: 20080430, end: 20080506
  2. SOLOSA [Concomitant]
     Indication: DIABETES MELLITUS
  3. TOTALIP [Concomitant]
     Indication: HYPERLIPIDAEMIA

REACTIONS (3)
  - DYSPNOEA [None]
  - FATIGUE [None]
  - TROPONIN I INCREASED [None]
